FAERS Safety Report 7440890-1 (Version None)
Quarter: 2011Q2

REPORT INFORMATION
  Report Type: 
  Country: None (occurrence: None)
  Receive Date: 20110427
  Receipt Date: 20110426
  Transmission Date: 20111010
  Serious: Yes (Hospitalization)
  Sender: FDA-Public Use
  Company Number: CA-B.I. PHARMACEUTICALS,INC./RIDGEFIELD-2011-CN-00520CN

PATIENT
  Age: 68 Year
  Sex: Male

DRUGS (7)
  1. TEMAZEPAM [Concomitant]
     Indication: INSOMNIA
  2. GABAPENTIN [Concomitant]
     Indication: DIABETIC NEUROPATHY
  3. HUMALOG [Concomitant]
     Indication: DIABETES MELLITUS
  4. TYLENOL W/ CODEINE NO. 3 [Concomitant]
  5. PRADAXA [Suspect]
     Indication: ATRIAL FIBRILLATION
     Route: 048
     Dates: start: 20110401
  6. ASPIRIN [Concomitant]
  7. LANTUS [Concomitant]
     Indication: DIABETES MELLITUS

REACTIONS (4)
  - OEDEMA PERIPHERAL [None]
  - RENAL FAILURE [None]
  - HEADACHE [None]
  - DYSPNOEA [None]
